FAERS Safety Report 11817930 (Version 2)
Quarter: 2016Q1

REPORT INFORMATION
  Report Type: Spontaneous
  Country: DE (occurrence: DE)
  Receive Date: 20151210
  Receipt Date: 20160113
  Transmission Date: 20160525
  Serious: Yes (Death, Hospitalization)
  Sender: FDA-Public Use
  Company Number: DE-ROCHE-1675284

PATIENT
  Age: 81 Year
  Sex: Female
  Weight: 69 kg

DRUGS (9)
  1. AQUAPHOR [Concomitant]
     Active Substance: PETROLATUM
  2. COTRIM D.S. [Concomitant]
     Active Substance: SULFAMETHOXAZOLE\TRIMETHOPRIM
  3. METOPROLOL. [Concomitant]
     Active Substance: METOPROLOL
  4. BENDAMUSTINE [Suspect]
     Active Substance: BENDAMUSTINE
     Indication: DIFFUSE LARGE B-CELL LYMPHOMA
     Route: 042
     Dates: start: 20151006, end: 20151105
  5. CLEXANE [Concomitant]
     Active Substance: ENOXAPARIN SODIUM
  6. MABTHERA [Suspect]
     Active Substance: RITUXIMAB
     Indication: DIFFUSE LARGE B-CELL LYMPHOMA
     Route: 042
     Dates: start: 20151005, end: 20151103
  7. L-THYROXIN [Concomitant]
     Active Substance: LEVOTHYROXINE SODIUM
  8. PANTOZOL [Concomitant]
     Active Substance: PANTOPRAZOLE SODIUM
  9. ENALAPRIL [Concomitant]
     Active Substance: ENALAPRIL

REACTIONS (2)
  - Drug eruption [Unknown]
  - Cardiac failure [Fatal]

NARRATIVE: CASE EVENT DATE: 20151130
